FAERS Safety Report 8470426-8 (Version None)
Quarter: 2012Q2

REPORT INFORMATION
  Report Type: 
  Country: None (occurrence: None)
  Receive Date: 20120627
  Receipt Date: 20120621
  Transmission Date: 20120825
  Serious: Yes (Other)
  Sender: FDA-Public Use
  Company Number: JP-BAYER-2012-056146

PATIENT
  Age: 3 Year
  Sex: Male
  Weight: 14 kg

DRUGS (4)
  1. KOGENATE FS [Suspect]
     Indication: FACTOR VIII DEFICIENCY
     Dosage: DAILY DOSE 500 IU
     Route: 042
     Dates: start: 20110101
  2. KOGENATE FS [Suspect]
     Dosage: DAILY DOSE 500 IU
     Route: 042
     Dates: start: 20120604, end: 20120604
  3. KOGENATE FS [Suspect]
     Dosage: DAILY DOSE 500 IU
     Route: 042
     Dates: start: 20110101
  4. KOGENATE FS [Suspect]
     Dosage: DAILY DOSE 500 IU
     Route: 042
     Dates: start: 20120602, end: 20120602

REACTIONS (5)
  - CHILLS [None]
  - ASTHENIA [None]
  - PERIPHERAL COLDNESS [None]
  - PYREXIA [None]
  - ANAPHYLACTIC REACTION [None]
